FAERS Safety Report 10984941 (Version 1)
Quarter: 2015Q2

REPORT INFORMATION
  Report Type: Report from Study
  Country: JP (occurrence: JP)
  Receive Date: 20150403
  Receipt Date: 20150403
  Transmission Date: 20150821
  Serious: Yes (Hospitalization)
  Sender: FDA-Public Use
  Company Number: JP-ABBVIE-08P-087-0433802-00

PATIENT
  Age: 63 Year
  Sex: Male

DRUGS (7)
  1. MAGLAX [Concomitant]
     Active Substance: MAGNESIUM OXIDE
     Indication: SPINAL MUSCULAR ATROPHY
     Route: 048
     Dates: start: 20071213, end: 20080107
  2. AMLODIN [Concomitant]
     Active Substance: AMLODIPINE BESYLATE
     Indication: HYPERTENSION
     Route: 048
     Dates: start: 20041117, end: 20080107
  3. METHYCOBAL [Concomitant]
     Active Substance: METHYLCOBALAMIN
     Indication: SPINAL MUSCULAR ATROPHY
     Route: 048
     Dates: start: 19971225, end: 20080107
  4. JUVELA NICOTINATE [Concomitant]
     Active Substance: TOCOPHERYL NICOTINATE, D-.ALPHA.
     Indication: SPINAL MUSCULAR ATROPHY
     Route: 048
     Dates: start: 19971225, end: 20080107
  5. MAGLAX [Concomitant]
     Active Substance: MAGNESIUM OXIDE
     Route: 048
     Dates: start: 20080129
  6. LEUPROLIDE ACETATE DEPOT [Suspect]
     Active Substance: LEUPROLIDE ACETATE
     Indication: SPINAL MUSCULAR ATROPHY
     Route: 058
     Dates: start: 20070124, end: 20071004
  7. DIOVAN [Concomitant]
     Active Substance: VALSARTAN
     Indication: HYPERTENSION
     Route: 048
     Dates: start: 20071213, end: 20080107

REACTIONS (1)
  - Cholecystitis [Recovering/Resolving]

NARRATIVE: CASE EVENT DATE: 20080106
